FAERS Safety Report 25627578 (Version 3)
Quarter: 2025Q3

REPORT INFORMATION
  Report Type: Spontaneous
  Country: CA (occurrence: CA)
  Receive Date: 20250731
  Receipt Date: 20250812
  Transmission Date: 20251020
  Serious: Yes (Other)
  Sender: SANDOZ
  Company Number: CA-002147023-NVSC2020CA083016

PATIENT
  Age: 31 Year
  Sex: Female
  Weight: 52 kg

DRUGS (32)
  1. AMITRIPTYLINE [Suspect]
     Active Substance: AMITRIPTYLINE
     Indication: Product used for unknown indication
     Dosage: 25 MG, QD
     Route: 064
  2. AMITRIPTYLINE [Suspect]
     Active Substance: AMITRIPTYLINE
     Route: 064
  3. ENOXAPARIN [Suspect]
     Active Substance: ENOXAPARIN
     Indication: Product used for unknown indication
     Route: 064
  4. ENOXAPARIN [Suspect]
     Active Substance: ENOXAPARIN
     Route: 064
  5. FENTANYL [Suspect]
     Active Substance: FENTANYL
     Route: 064
  6. FENTANYL [Suspect]
     Active Substance: FENTANYL
     Route: 064
  7. FENTANYL [Suspect]
     Active Substance: FENTANYL
     Indication: Traumatic pain
     Route: 064
  8. GRAVOL [Suspect]
     Active Substance: DIMENHYDRINATE
     Indication: Product used for unknown indication
     Route: 042
  9. GRAVOL [Suspect]
     Active Substance: DIMENHYDRINATE
     Route: 064
  10. GRAVOL [Suspect]
     Active Substance: DIMENHYDRINATE
     Route: 064
  11. GRAVOL [Suspect]
     Active Substance: DIMENHYDRINATE
     Route: 064
  12. HYDROMORPHONE HYDROCHLORIDE [Suspect]
     Active Substance: HYDROMORPHONE HYDROCHLORIDE
     Route: 064
  13. HYDROMORPHONE HYDROCHLORIDE [Suspect]
     Active Substance: HYDROMORPHONE HYDROCHLORIDE
     Indication: Traumatic pain
     Dosage: 8 MG, TID
     Route: 042
  14. HYDROMORPHONE HYDROCHLORIDE [Suspect]
     Active Substance: HYDROMORPHONE HYDROCHLORIDE
     Dosage: 8 MG, TID
     Route: 064
  15. HYDROMORPHONE HYDROCHLORIDE [Suspect]
     Active Substance: HYDROMORPHONE HYDROCHLORIDE
     Dosage: 8 MG, TID
     Route: 064
  16. HYDROMORPHONE HYDROCHLORIDE [Suspect]
     Active Substance: HYDROMORPHONE HYDROCHLORIDE
     Route: 064
  17. HYDROMORPHONE HYDROCHLORIDE [Suspect]
     Active Substance: HYDROMORPHONE HYDROCHLORIDE
     Route: 064
  18. HYDROMORPHONE [Suspect]
     Active Substance: HYDROMORPHONE
     Indication: Traumatic pain
     Dosage: 24 MG, TID
     Route: 064
  19. HYDROMORPHONE [Suspect]
     Active Substance: HYDROMORPHONE
     Dosage: 24 MG, TID
     Route: 064
  20. HYDROMORPHONE [Suspect]
     Active Substance: HYDROMORPHONE
     Dosage: 24 MG, TID
     Route: 064
  21. LORAZEPAM [Suspect]
     Active Substance: LORAZEPAM
     Dosage: 0.5 MG, QD
     Route: 064
  22. LORAZEPAM [Suspect]
     Active Substance: LORAZEPAM
     Indication: Product used for unknown indication
     Dosage: 5 MG, QD
     Route: 064
  23. ONDANSETRON [Suspect]
     Active Substance: ONDANSETRON
     Indication: Product used for unknown indication
     Route: 042
  24. ONDANSETRON [Suspect]
     Active Substance: ONDANSETRON
     Route: 064
  25. ONDANSETRON [Suspect]
     Active Substance: ONDANSETRON
     Route: 064
  26. ONDANSETRON [Suspect]
     Active Substance: ONDANSETRON
     Route: 064
  27. PANTOPRAZOLE SODIUM [Suspect]
     Active Substance: PANTOPRAZOLE SODIUM
     Indication: Product used for unknown indication
     Route: 064
  28. PANTOPRAZOLE SODIUM [Suspect]
     Active Substance: PANTOPRAZOLE SODIUM
     Route: 064
  29. PROCHLORPERAZINE [Suspect]
     Active Substance: PROCHLORPERAZINE
     Indication: Product used for unknown indication
     Route: 036
  30. PROCHLORPERAZINE [Suspect]
     Active Substance: PROCHLORPERAZINE
     Route: 064
  31. PROCHLORPERAZINE [Suspect]
     Active Substance: PROCHLORPERAZINE
     Route: 064
  32. PROCHLORPERAZINE [Suspect]
     Active Substance: PROCHLORPERAZINE
     Route: 064

REACTIONS (5)
  - Drug withdrawal syndrome [Recovered/Resolved]
  - Pulmonary embolism [Recovered/Resolved]
  - Premature delivery [Recovered/Resolved]
  - Premature baby [Recovered/Resolved]
  - Maternal exposure during pregnancy [Recovered/Resolved]
